FAERS Safety Report 6336599-8 (Version None)
Quarter: 2009Q3

REPORT INFORMATION
  Report Type: 
  Country: None (occurrence: None)
  Receive Date: 20090901
  Receipt Date: 20090828
  Transmission Date: 20100115
  Serious: Yes (Life-Threatening, Other)
  Sender: FDA-Public Use
  Company Number: US-JNJFOC-20080706546

PATIENT
  Sex: Female
  Weight: 93.2 kg

DRUGS (10)
  1. CONCERTA [Suspect]
     Indication: ATTENTION DEFICIT/HYPERACTIVITY DISORDER
     Route: 048
  2. BLINDED THERAPY [Concomitant]
     Indication: OBESITY
     Route: 048
  3. LOVASTATIN [Concomitant]
     Indication: BLOOD CHOLESTEROL INCREASED
     Route: 048
  4. ALEVE [Concomitant]
     Indication: ARTHRITIS
     Route: 048
  5. FLAXSEED OIL [Concomitant]
     Route: 048
  6. GLUCOSAMINE [Concomitant]
     Indication: DRUG USE FOR UNKNOWN INDICATION
     Route: 048
  7. WELLBUTRIN XL [Concomitant]
     Indication: DEPRESSION
     Route: 048
  8. MULTI-VITAMINS [Concomitant]
     Indication: DRUG USE FOR UNKNOWN INDICATION
     Route: 048
  9. ROBITUSSIN [Concomitant]
     Indication: UPPER RESPIRATORY TRACT INFECTION
     Route: 048
  10. GUAIFENESIN [Concomitant]
     Route: 065

REACTIONS (2)
  - ATRIAL FIBRILLATION [None]
  - MYOCARDIAL INFARCTION [None]
